FAERS Safety Report 10478380 (Version 1)
Quarter: 2014Q3

REPORT INFORMATION
  Report Type: Spontaneous
  Country: US (occurrence: US)
  Receive Date: 20140926
  Receipt Date: 20140926
  Transmission Date: 20150326
  Serious: Yes (Hospitalization, Other)
  Sender: FDA-Public Use
  Company Number: US-GILEAD-2014-0116328

PATIENT
  Age: 58 Year
  Sex: Male

DRUGS (1)
  1. LETAIRIS [Suspect]
     Active Substance: AMBRISENTAN
     Indication: PRODUCT USED FOR UNKNOWN INDICATION
     Dosage: 10 MG, QD
     Route: 065
     Dates: start: 20140128

REACTIONS (6)
  - Facial bones fracture [Unknown]
  - Fall [Unknown]
  - Dysphagia [Unknown]
  - Syncope [Unknown]
  - Cardiac pacemaker insertion [Unknown]
  - Dyspnoea [Unknown]
